FAERS Safety Report 9690945 (Version 2)
Quarter: 2014Q2

REPORT INFORMATION
  Report Type: Spontaneous
  Country: US (occurrence: US)
  Receive Date: 20131115
  Receipt Date: 20140516
  Transmission Date: 20141212
  Serious: Yes (Other)
  Sender: FDA-Public Use
  Company Number: US-PFIZER INC-2013326503

PATIENT
  Age: 45 Year
  Sex: Female
  Weight: 90.7 kg

DRUGS (5)
  1. PRISTIQ [Suspect]
     Indication: DEPRESSION
     Dosage: 50 MG, DAILY
     Dates: start: 2010
  2. PRISTIQ [Suspect]
     Indication: ANXIETY
     Dosage: 50 MG, DAILY
     Dates: start: 20131002
  3. TOPAMAX [Concomitant]
     Indication: MIGRAINE
     Dosage: UNK
  4. ZOMAX [Concomitant]
     Indication: MIGRAINE
     Dosage: UNK
  5. IMITREX [Concomitant]
     Indication: MIGRAINE
     Dosage: UNK

REACTIONS (2)
  - Diabetes mellitus [Not Recovered/Not Resolved]
  - Drug ineffective [Not Recovered/Not Resolved]
